FAERS Safety Report 17100294 (Version 2)
Quarter: 2020Q1

REPORT INFORMATION
  Report Type: Spontaneous
  Country: US (occurrence: US)
  Receive Date: 20191202
  Receipt Date: 20200311
  Transmission Date: 20200409
  Serious: No
  Sender: FDA-Public Use
  Company Number: US-JNJFOC-20191133096

PATIENT
  Sex: Female
  Weight: 118.04 kg

DRUGS (5)
  1. XIMAX [Concomitant]
     Indication: ANXIETY
     Route: 065
     Dates: start: 20190925
  2. PRISTIQ EXTENDED-RELEASE [Concomitant]
     Active Substance: DESVENLAFAXINE SUCCINATE
     Indication: DEPRESSION
     Route: 065
     Dates: start: 20200120
  3. INVEGA [Concomitant]
     Active Substance: PALIPERIDONE
     Indication: BIPOLAR DISORDER
     Route: 048
     Dates: start: 20191204
  4. INVEGA SUSTENNA [Suspect]
     Active Substance: PALIPERIDONE PALMITATE
     Indication: BIPOLAR DISORDER
     Route: 030
     Dates: start: 20191113, end: 20191119
  5. INVEGA [Concomitant]
     Active Substance: PALIPERIDONE

REACTIONS (4)
  - Product use in unapproved indication [Unknown]
  - Injection site mass [Unknown]
  - Off label use [Unknown]
  - Product dose omission [Unknown]
